FAERS Safety Report 9836668 (Version 1)
Quarter: 2013Q4

REPORT INFORMATION
  Report Type: Spontaneous
  Country: US (occurrence: None)
  Receive Date: 20131120
  Receipt Date: 20131120
  Transmission Date: 20140711
  Serious: No
  Sender: FDA-Public Use
  Company Number: 1000049331

PATIENT
  Age: 44 Year
  Sex: Female

DRUGS (6)
  1. VIIBRYD [Suspect]
     Indication: MAJOR DEPRESSION
     Dosage: 10 MG (10 MG, 1 IN 1 D), ORAL
     Route: 048
     Dates: start: 20130820, end: 20130827
  2. VIIBRYD [Suspect]
     Dosage: 30 MG (30 MG, 1IN 1 D), ORAL
     Route: 048
     Dates: start: 20130912, end: 20130919
  3. VIIBRYD [Suspect]
     Dosage: 20 MG (20 MG, 1 IN 1 D), ORAL
     Route: 048
     Dates: start: 20130920, end: 20130924
  4. ALLEGRA (FEXOFENADINE HYDROCHLORIDE) (FEXOFENADINE HYDROCHLORIDE)? [Concomitant]
  5. SINGULAIR (MONTELUKAST SODIUM) (MONTELUKAST SODIUM) [Concomitant]
  6. MELOXICAM (MELOXICAM)  (MELOXICAM) [Concomitant]

REACTIONS (3)
  - Anxiety [None]
  - Depression [None]
  - Insomnia [None]
